FAERS Safety Report 4646389-X (Version None)
Quarter: 2005Q2

REPORT INFORMATION
  Report Type: 
  Country: None (occurrence: None)
  Receive Date: 20050427
  Receipt Date: 20030617
  Transmission Date: 20051028
  Serious: No
  Sender: FDA-Public Use
  Company Number: US-GLAXOSMITHKLINE-A0413296A

PATIENT
  Age: 40 Year
  Sex: Male
  Weight: 86.8 kg

DRUGS (1)
  1. SEREVENT [Suspect]
     Route: 055
     Dates: start: 20000101

REACTIONS (4)
  - DYSPEPSIA [None]
  - HAEMOPTYSIS [None]
  - HEADACHE [None]
  - LUNG INJURY [None]
